FAERS Safety Report 6218875-2 (Version None)
Quarter: 2009Q2

REPORT INFORMATION
  Report Type: 
  Country: None (occurrence: None)
  Receive Date: 20090608
  Receipt Date: 20090602
  Transmission Date: 20091009
  Serious: No
  Sender: FDA-Public Use
  Company Number: US-B.I. PHARMACEUTICALS,INC./RIDGEFIELD-2009-BP-06792BP

PATIENT
  Sex: Female

DRUGS (4)
  1. ZANTAC 150 [Suspect]
     Indication: DYSPEPSIA
     Route: 048
     Dates: start: 20090501
  2. COREG [Concomitant]
     Indication: HYPERTENSION
  3. BENICAR [Concomitant]
     Indication: HYPERTENSION
  4. VITAMINS [Concomitant]

REACTIONS (2)
  - CONSTIPATION [None]
  - ERUCTATION [None]
